FAERS Safety Report 5701086-4 (Version None)
Quarter: 2008Q2

REPORT INFORMATION
  Report Type: 
  Country: None (occurrence: None)
  Receive Date: 20080410
  Receipt Date: 20080327
  Transmission Date: 20081010
  Serious: Yes (Hospitalization, Other)
  Sender: FDA-Public Use
  Company Number: US-AMGEN-US268629

PATIENT
  Sex: Male

DRUGS (4)
  1. KINERET [Suspect]
     Route: 064
     Dates: start: 20020114, end: 20050208
  2. CELEBREX [Concomitant]
     Route: 064
  3. CHORIONIC GONADTROPIN [Concomitant]
     Route: 064
  4. VITAMIN TAB [Concomitant]
     Route: 064

REACTIONS (2)
  - DYSPNOEA [None]
  - POOR SUCKING REFLEX [None]
